FAERS Safety Report 8420052-1 (Version None)
Quarter: 2012Q2

REPORT INFORMATION
  Report Type: 
  Country: None (occurrence: None)
  Receive Date: 20120607
  Receipt Date: 20120607
  Transmission Date: 20120825
  Serious: Yes (Death)
  Sender: FDA-Public Use
  Company Number: US-PFIZER INC-2010US-36130

PATIENT
  Age: 43 Year

DRUGS (3)
  1. CLONIDINE [Suspect]
     Dosage: UNK
     Route: 048
     Dates: start: 20040101
  2. CALAN [Suspect]
     Dosage: UNK
     Route: 048
     Dates: start: 20040101
  3. ETHANOL [Suspect]
     Dosage: UNK
     Route: 048
     Dates: start: 20040101

REACTIONS (1)
  - COMPLETED SUICIDE [None]
